FAERS Safety Report 25710032 (Version 3)
Quarter: 2025Q4

REPORT INFORMATION
  Report Type: Report from Study
  Country: CA (occurrence: CA)
  Receive Date: 20250821
  Receipt Date: 20251217
  Transmission Date: 20260117
  Serious: Yes (Hospitalization, Other)
  Sender: CELLTRION
  Company Number: CA-CELLTRION INC.-2025CA015850

PATIENT

DRUGS (3)
  1. INFLIXIMAB-DYYB [Suspect]
     Active Substance: INFLIXIMAB-DYYB
     Indication: Crohn^s disease
     Dosage: LOADING - 10 MG/KG - IV (INTRAVENOUS) WEEKS 0,2,6; MAINTENANCE - 10MG/KG EVERY 8 WEEKS
     Route: 042
     Dates: start: 20250512
  2. INFLIXIMAB-DYYB [Suspect]
     Active Substance: INFLIXIMAB-DYYB
     Dosage: MAINTENANCE - 10MG/KG EVERY 4 WEEKS./600MG. 6 VIALS AVAILABLE.
     Route: 042
     Dates: start: 20250820
  3. INFLIXIMAB-DYYB [Suspect]
     Active Substance: INFLIXIMAB-DYYB
     Dosage: MAINTENANCE - 10MG/KG EVERY 8 WEEKS.
     Route: 042
     Dates: start: 20250512

REACTIONS (4)
  - Intestinal resection [Recovering/Resolving]
  - Weight increased [Unknown]
  - Underdose [Unknown]
  - Off label use [Unknown]

NARRATIVE: CASE EVENT DATE: 20250512
